FAERS Safety Report 6050057-X (Version None)
Quarter: 2009Q1

REPORT INFORMATION
  Report Type: 
  Country: None (occurrence: None)
  Receive Date: 20090126
  Receipt Date: 20090119
  Transmission Date: 20090719
  Serious: Yes (Other)
  Sender: FDA-Public Use
  Company Number: FR-BRISTOL-MYERS SQUIBB COMPANY-14476147

PATIENT
  Age: 61 Year
  Sex: Female

DRUGS (5)
  1. BICNU [Suspect]
     Dosage: CHEMOTHERAPY CONTINUED ON 13DEC08
     Dates: start: 20081212, end: 20081212
  2. CYTARABINE [Concomitant]
  3. ETOPOSIDE [Concomitant]
  4. ZOPHREN [Concomitant]
  5. TIAPRIDAL [Concomitant]

REACTIONS (6)
  - EYELID OEDEMA [None]
  - MALAISE [None]
  - MEDICATION ERROR [None]
  - PAIN IN JAW [None]
  - PROCTALGIA [None]
  - SENSE OF OPPRESSION [None]
